FAERS Safety Report 18499338 (Version 16)
Quarter: 2021Q3

REPORT INFORMATION
  Report Type: Report from Study
  Country: NL (occurrence: NL)
  Receive Date: 20201112
  Receipt Date: 20210707
  Transmission Date: 20211014
  Serious: Yes (Hospitalization, Other)
  Sender: FDA-Public Use
  Company Number: NL-GILEAD-2020-0488864

PATIENT
  Age: 66 Year
  Sex: Male
  Weight: 75.7 kg

DRUGS (78)
  1. MESNA. [Suspect]
     Active Substance: MESNA
     Indication: PRODUCT USED FOR UNKNOWN INDICATION
     Dosage: 400 MG, TID
     Route: 042
     Dates: start: 20200910, end: 20200910
  2. DEXAMETHASONE. [Suspect]
     Active Substance: DEXAMETHASONE
     Dosage: 10 MG, QD
     Route: 048
     Dates: start: 20201013, end: 20201016
  3. VORICONAZOLE. [Concomitant]
     Active Substance: VORICONAZOLE
     Dosage: 400 MG, QD
     Route: 048
     Dates: start: 20201120, end: 20201121
  4. PARACETAMOL [Concomitant]
     Active Substance: ACETAMINOPHEN
     Dosage: 500 MG, Q4HR OR PRN
     Route: 048
     Dates: start: 20200921, end: 20200923
  5. PARACETAMOL [Concomitant]
     Active Substance: ACETAMINOPHEN
     Dosage: 1000 MG, TID
     Dates: start: 20201011, end: 20201027
  6. PARACETAMOL [Concomitant]
     Active Substance: ACETAMINOPHEN
     Dosage: 1000 MG, ONCE
     Route: 048
     Dates: start: 20210329, end: 20210329
  7. ESOMEPRAZOLE. [Concomitant]
     Active Substance: ESOMEPRAZOLE MAGNESIUM
     Dosage: 40 MG, BID
     Route: 048
     Dates: start: 20200902, end: 20200911
  8. FUROSEMIDE. [Concomitant]
     Active Substance: FUROSEMIDE
     Indication: FLUID RETENTION
     Dosage: UNK
     Dates: start: 20200910, end: 20200911
  9. FUROSEMIDE. [Concomitant]
     Active Substance: FUROSEMIDE
     Dosage: 20 MG, ONCE
     Route: 042
     Dates: start: 20200912, end: 20200912
  10. METOCLOPRAMIDE. [Concomitant]
     Active Substance: METOCLOPRAMIDE
     Indication: VOMITING
     Dosage: 10 MG, UNK
     Route: 042
     Dates: start: 20200911, end: 20200911
  11. METOCLOPRAMIDE. [Concomitant]
     Active Substance: METOCLOPRAMIDE
     Dosage: 10 MG, BID
     Route: 048
     Dates: start: 20201009, end: 20201010
  12. METOCLOPRAMIDE. [Concomitant]
     Active Substance: METOCLOPRAMIDE
     Dosage: 10 MG, PRN
     Route: 048
     Dates: start: 20210331
  13. METOCLOPRAMIDE. [Concomitant]
     Active Substance: METOCLOPRAMIDE
     Dosage: 10 MG, ONCE
     Route: 042
     Dates: start: 20210331, end: 20210331
  14. COTRIMOXAZOL [Concomitant]
     Active Substance: SULFAMETHOXAZOLE\TRIMETHOPRIM
     Dosage: 480 MG, QD
     Route: 048
     Dates: start: 20200915
  15. HYPROMELLOSE [Concomitant]
     Active Substance: HYPROMELLOSES
     Indication: LACRIMATION INCREASED
  16. MESNA. [Suspect]
     Active Substance: MESNA
     Indication: ACCIDENTAL EXPOSURE TO PRODUCT
     Dosage: 1600 MG, BID
     Route: 048
     Dates: start: 20201106, end: 20201108
  17. DEXAMETHASONE. [Suspect]
     Active Substance: DEXAMETHASONE
     Dosage: 10 MG, BID
     Route: 042
     Dates: start: 20200924, end: 20201001
  18. DEXAMETHASONE. [Suspect]
     Active Substance: DEXAMETHASONE
     Dosage: 7.5 MG, QD
     Route: 048
     Dates: start: 20201017, end: 20201019
  19. PARACETAMOL [Concomitant]
     Active Substance: ACETAMINOPHEN
     Dosage: 100 MG
     Route: 042
     Dates: start: 20200916, end: 20200917
  20. PARACETAMOL [Concomitant]
     Active Substance: ACETAMINOPHEN
     Dosage: 1000 MG, PRN
     Route: 048
     Dates: start: 20210330
  21. ONDANSETRON [Concomitant]
     Active Substance: ONDANSETRON
     Indication: VOMITING
     Dosage: 8 MG, BID
     Dates: start: 20200910, end: 20200915
  22. DEXAMETHASONE. [Suspect]
     Active Substance: DEXAMETHASONE
     Indication: PRODUCT USED FOR UNKNOWN INDICATION
     Dosage: 40 MG, QD
     Route: 048
     Dates: start: 20200902, end: 20200904
  23. CYCLOPHOSPHAMIDE. [Suspect]
     Active Substance: CYCLOPHOSPHAMIDE
     Indication: PRODUCT USED FOR UNKNOWN INDICATION
     Dosage: 1040 MG, QD
     Route: 042
     Dates: start: 20200911, end: 20200912
  24. IBRUTINIB [Concomitant]
     Active Substance: IBRUTINIB
     Dosage: 140 MG, QD
     Route: 048
     Dates: start: 20200819, end: 20200826
  25. IBRUTINIB [Concomitant]
     Active Substance: IBRUTINIB
     Dosage: 140 MG, QD
     Route: 048
     Dates: start: 20200825, end: 20200915
  26. FENTANYL. [Concomitant]
     Active Substance: FENTANYL
     Dosage: 100 UG, ONCE
     Route: 060
     Dates: start: 20201009, end: 20201009
  27. TEMAZEPAM. [Concomitant]
     Active Substance: TEMAZEPAM
     Dosage: 10 MG, BID
     Route: 048
     Dates: start: 20200918, end: 20200924
  28. PARACETAMOL [Concomitant]
     Active Substance: ACETAMINOPHEN
     Dosage: 1000 MG, BID
     Route: 048
     Dates: start: 20200801, end: 20200817
  29. PARACETAMOL [Concomitant]
     Active Substance: ACETAMINOPHEN
     Dosage: 1000 MG, BID
     Route: 048
     Dates: start: 20201008, end: 20201008
  30. PSYLLIUM [PLANTAGO PSYLLIUM] [Concomitant]
     Active Substance: HERBALS\PLANTAGO INDICA WHOLE
     Indication: CONSTIPATION
     Dosage: 3.4 G, TID
     Route: 048
     Dates: start: 20200804, end: 20200908
  31. MOVICOLON [Concomitant]
     Active Substance: POLYETHYLENE GLYCOL 3350\POTASSIUM CHLORIDE\SODIUM BICARBONATE\SODIUM CHLORIDE
     Dosage: 13.8 MG, BID
     Route: 048
     Dates: start: 20201009, end: 20201010
  32. DEXAMETHASONE. [Suspect]
     Active Substance: DEXAMETHASONE
     Dosage: 10 MG, QD
     Route: 042
     Dates: start: 20200922, end: 20200923
  33. FENTANYL. [Concomitant]
     Active Substance: FENTANYL
     Dosage: 100 UG, ONCE, PRN
     Route: 060
     Dates: start: 20201022, end: 20201022
  34. TEMAZEPAM. [Concomitant]
     Active Substance: TEMAZEPAM
     Dosage: 10 MG, ONCE
     Route: 048
     Dates: start: 20200918, end: 20200918
  35. PARACETAMOL [Concomitant]
     Active Substance: ACETAMINOPHEN
     Dosage: 1000 MG, TID
     Route: 042
     Dates: start: 20201009, end: 20201009
  36. CARBOPLATIN. [Concomitant]
     Active Substance: CARBOPLATIN
  37. CYTARABINE. [Concomitant]
     Active Substance: CYTARABINE
  38. RITUXIMAB. [Concomitant]
     Active Substance: RITUXIMAB
  39. LACTULOSE. [Concomitant]
     Active Substance: LACTULOSE
     Indication: CONSTIPATION
     Dosage: 10 G, BID
     Route: 048
     Dates: start: 20200826, end: 20200909
  40. LACTULOSE. [Concomitant]
     Active Substance: LACTULOSE
     Dosage: 10 G, BID
     Route: 048
     Dates: start: 20200915, end: 20200917
  41. ESOMEPRAZOLE. [Concomitant]
     Active Substance: ESOMEPRAZOLE MAGNESIUM
     Dosage: 40 MG, QD
     Route: 048
     Dates: start: 20200912
  42. PLATELETS [Concomitant]
     Active Substance: HUMAN PLATELET, ALLOGENIC
     Indication: PLATELET COUNT DECREASED
     Dosage: UNK
     Dates: start: 20200909, end: 20200909
  43. VORICONAZOLE. [Concomitant]
     Active Substance: VORICONAZOLE
     Dosage: 500 MG, BID
     Route: 048
     Dates: start: 20200909
  44. ANIDULAFUNGIN [Concomitant]
     Active Substance: ANIDULAFUNGIN
     Dosage: 200 MG ONCE
     Route: 042
     Dates: start: 20200902, end: 20200902
  45. FENTANYL. [Concomitant]
     Active Substance: FENTANYL
     Dosage: 100 MG, TID PRN
     Route: 060
     Dates: start: 20201207, end: 20210104
  46. TEMAZEPAM. [Concomitant]
     Active Substance: TEMAZEPAM
     Dosage: 10 MG, ONCE
     Route: 048
     Dates: start: 20200914, end: 20200914
  47. PARACETAMOL [Concomitant]
     Active Substance: ACETAMINOPHEN
     Dosage: 1000 MG, ONCE
     Route: 048
     Dates: start: 20200915, end: 20200915
  48. PARACETAMOL [Concomitant]
     Active Substance: ACETAMINOPHEN
     Dosage: 1000 MG, ONCE
     Route: 048
     Dates: start: 20200922, end: 20200922
  49. PARACETAMOL [Concomitant]
     Active Substance: ACETAMINOPHEN
     Dosage: 1000 MG, TID
     Route: 042
     Dates: start: 20201011, end: 20201128
  50. KTE?X19 [Suspect]
     Active Substance: BREXUCABTAGENE AUTOLEUCEL
     Indication: MANTLE CELL LYMPHOMA
     Dosage: UNK
     Route: 042
     Dates: start: 20200915, end: 20200915
  51. MESNA. [Suspect]
     Active Substance: MESNA
     Dosage: 400 MG, TID
     Route: 042
     Dates: start: 20200912, end: 20200912
  52. CYCLOPHOSPHAMIDE. [Suspect]
     Active Substance: CYCLOPHOSPHAMIDE
     Dosage: 300 MG; 6 X 50
     Route: 048
     Dates: start: 20201106, end: 20201106
  53. CARBOPLATIN;CYTARABINE;DEXAMETHASONE;RITUXIMAB [Concomitant]
     Dosage: UNK
     Dates: start: 20200714, end: 20200717
  54. VORICONAZOLE. [Concomitant]
     Active Substance: VORICONAZOLE
     Dosage: 338.8 MG, BID
     Route: 042
     Dates: start: 20200811, end: 20200819
  55. VORICONAZOLE. [Concomitant]
     Active Substance: VORICONAZOLE
     Dosage: 200 MG, BID
     Route: 042
     Dates: start: 20200819, end: 20200820
  56. FENTANYL. [Concomitant]
     Active Substance: FENTANYL
     Dosage: 12 UG Q1HR
     Route: 062
     Dates: start: 20200813, end: 20200817
  57. RASBURICASE [Concomitant]
     Active Substance: RASBURICASE
     Dosage: 3 MG, QD
     Route: 042
     Dates: start: 20200915, end: 20200916
  58. PSYLLIUM [PLANTAGO PSYLLIUM] [Concomitant]
     Active Substance: HERBALS\PLANTAGO INDICA WHOLE
     Dosage: 3.4 G, PRN
     Route: 048
     Dates: start: 20210409
  59. ESOMEPRAZOLE. [Concomitant]
     Active Substance: ESOMEPRAZOLE MAGNESIUM
     Dosage: 40 MG, BID
     Route: 048
     Dates: start: 20200819, end: 20200819
  60. ONDANSETRON [Concomitant]
     Active Substance: ONDANSETRON
     Dosage: 8 MG, BID
     Dates: start: 20200917, end: 20200917
  61. FUROSEMIDE. [Concomitant]
     Active Substance: FUROSEMIDE
     Dosage: 20 MG, BID
     Dates: start: 20200920, end: 20200921
  62. VORICONAZOLE. [Concomitant]
     Active Substance: VORICONAZOLE
     Dosage: 200 MG, BID
     Route: 048
     Dates: start: 20200825, end: 20200910
  63. PARACETAMOL [Concomitant]
     Active Substance: ACETAMINOPHEN
     Dosage: 1000 MG, QID OR AS NEEDED
     Route: 048
     Dates: start: 20201009, end: 20201011
  64. NORADRENALIN [NOREPINEPHRINE] [Concomitant]
     Active Substance: NOREPINEPHRINE
     Dosage: 0.2 UG/KG /MIN, CONTINIOUS
     Route: 042
     Dates: start: 20201009, end: 20201010
  65. FLUDARABINE [Suspect]
     Active Substance: FLUDARABINE PHOSPHATE
     Indication: PRODUCT USED FOR UNKNOWN INDICATION
     Dosage: 30 MG, ONCE
     Route: 042
     Dates: start: 20200910, end: 20200910
  66. FLUDARABINE [Suspect]
     Active Substance: FLUDARABINE PHOSPHATE
     Dosage: 30 MG, ONCE
     Route: 042
     Dates: start: 20200912, end: 20200912
  67. DEXAMETHASONE. [Suspect]
     Active Substance: DEXAMETHASONE
     Dosage: 10 MG, QID
     Route: 048
     Dates: start: 20201001, end: 20201008
  68. DEXAMETHASONE. [Suspect]
     Active Substance: DEXAMETHASONE
     Dosage: 10 MG, BID
     Route: 048
     Dates: start: 20201009, end: 20201012
  69. ANIDULAFUNGIN [Concomitant]
     Active Substance: ANIDULAFUNGIN
     Dosage: 100 MG, QD
     Route: 042
     Dates: start: 20200811, end: 20200908
  70. ANIDULAFUNGIN [Concomitant]
     Active Substance: ANIDULAFUNGIN
     Dosage: 100 MG, QD
     Route: 042
     Dates: start: 20200909, end: 20201010
  71. IBRUTINIB [Concomitant]
     Active Substance: IBRUTINIB
     Dosage: 560 MG, QD
     Route: 048
     Dates: start: 20200813, end: 20200818
  72. CLEMASTINE [Concomitant]
     Active Substance: CLEMASTINE
     Dosage: 2 MG, ONCE
     Route: 042
     Dates: start: 20200915, end: 20200915
  73. VALACICLOVIR [Concomitant]
     Active Substance: VALACYCLOVIR HYDROCHLORIDE
     Dosage: 500 MG, BID
     Route: 048
     Dates: start: 20200825
  74. ESOMEPRAZOLE. [Concomitant]
     Active Substance: ESOMEPRAZOLE MAGNESIUM
     Dosage: 40 MG, QD
     Route: 048
     Dates: start: 20210330, end: 20210331
  75. METOCLOPRAMIDE. [Concomitant]
     Active Substance: METOCLOPRAMIDE
     Dosage: 10 MG, BID OR PRN
     Route: 042
     Dates: start: 20200916, end: 20200924
  76. METOCLOPRAMIDE. [Concomitant]
     Active Substance: METOCLOPRAMIDE
     Dosage: 10 MG, PRN
     Route: 042
     Dates: start: 20201113
  77. COTRIMOXAZOL [Concomitant]
     Active Substance: SULFAMETHOXAZOLE\TRIMETHOPRIM
     Dosage: 480 MG, QD
     Route: 048
     Dates: start: 20210330, end: 20210331
  78. MOVICOLON [Concomitant]
     Active Substance: POLYETHYLENE GLYCOL 3350\POTASSIUM CHLORIDE\SODIUM BICARBONATE\SODIUM CHLORIDE
     Dosage: 13.8 G, PRN
     Route: 048
     Dates: start: 20200921

REACTIONS (28)
  - Neutropenic sepsis [Recovered/Resolved]
  - Tremor [Recovered/Resolved]
  - Delirium [Recovered/Resolved]
  - Accidental exposure to product [Recovered/Resolved]
  - Balance disorder [Recovered/Resolved]
  - Infection [Unknown]
  - Parainfluenzae virus infection [Not Recovered/Not Resolved]
  - Constipation [Recovered/Resolved]
  - Fluid retention [Recovered/Resolved]
  - Cough [Not Recovered/Not Resolved]
  - Abnormal faeces [Not Recovered/Not Resolved]
  - Nausea [Recovered/Resolved]
  - Haemophagocytic lymphohistiocytosis [Recovered/Resolved]
  - Pyrexia [Recovered/Resolved]
  - Vomiting [Recovered/Resolved]
  - Vomiting [Not Recovered/Not Resolved]
  - C-reactive protein increased [Not Recovered/Not Resolved]
  - Pyrexia [Recovered/Resolved]
  - Cytokine release syndrome [Recovered/Resolved]
  - Aphasia [Recovered/Resolved]
  - Rhinovirus infection [Not Recovered/Not Resolved]
  - Lacrimation increased [Recovered/Resolved]
  - Vomiting [Recovered/Resolved]
  - Confusional state [Not Recovered/Not Resolved]
  - Vomiting [Recovered/Resolved]
  - Delirium [Not Recovered/Not Resolved]
  - Fall [Recovered/Resolved]
  - Vomiting [Recovered/Resolved]

NARRATIVE: CASE EVENT DATE: 20200916
